FAERS Safety Report 16101840 (Version 2)
Quarter: 2019Q2

REPORT INFORMATION
  Report Type: Spontaneous
  Country: US (occurrence: US)
  Receive Date: 20190321
  Receipt Date: 20190403
  Transmission Date: 20190711
  Serious: Yes (Other)
  Sender: FDA-Public Use
  Company Number: US-AMGEN-USASP2019040408

PATIENT
  Age: 75 Year
  Sex: Male

DRUGS (16)
  1. ELIQUIS [Concomitant]
     Active Substance: APIXABAN
  2. JAKAFI [Suspect]
     Active Substance: RUXOLITINIB
     Indication: MYELOPROLIFERATIVE NEOPLASM
     Dosage: 10 MILLIGRAM, BID
     Route: 048
     Dates: start: 20161208
  3. JAKAFI [Suspect]
     Active Substance: RUXOLITINIB
     Indication: EOSINOPHILIA
  4. TRAMADOL. [Concomitant]
     Active Substance: TRAMADOL
  5. ULORIC [Concomitant]
     Active Substance: FEBUXOSTAT
  6. CRESTOR [Concomitant]
     Active Substance: ROSUVASTATIN CALCIUM
  7. POTASSIUM CHLORIDE. [Concomitant]
     Active Substance: POTASSIUM CHLORIDE
  8. INDOMETHACIN [INDOMETACIN] [Concomitant]
     Active Substance: INDOMETHACIN
  9. TEMAZEPAM. [Concomitant]
     Active Substance: TEMAZEPAM
  10. GABAPENTIN. [Concomitant]
     Active Substance: GABAPENTIN
  11. TRAZODONE [Concomitant]
     Active Substance: TRAZODONE HYDROCHLORIDE
  12. JAKAFI [Suspect]
     Active Substance: RUXOLITINIB
     Indication: ESSENTIAL THROMBOCYTHAEMIA
     Dosage: 10 MILLIGRAM, BID
     Route: 048
     Dates: start: 20171208
  13. OMEPRAZOLE. [Concomitant]
     Active Substance: OMEPRAZOLE
  14. VITAMIN D [ERGOCALCIFEROL] [Concomitant]
     Active Substance: ERGOCALCIFEROL
  15. JAKAFI [Suspect]
     Active Substance: RUXOLITINIB
     Indication: HAEMOLYTIC ANAEMIA
     Dosage: 5 MILLIGRAM, BID
     Route: 048
     Dates: start: 20180228
  16. ARANESP [Suspect]
     Active Substance: DARBEPOETIN ALFA
     Indication: PRODUCT USED FOR UNKNOWN INDICATION
     Dosage: UNK
     Route: 065

REACTIONS (4)
  - Sneezing [Unknown]
  - Off label use [Unknown]
  - Fluid retention [Unknown]
  - Renal impairment [Unknown]

NARRATIVE: CASE EVENT DATE: 20180228
